FAERS Safety Report 5489211-4 (Version None)
Quarter: 2007Q4

REPORT INFORMATION
  Report Type: 
  Country: None (occurrence: None)
  Receive Date: 20071016
  Receipt Date: 20071001
  Transmission Date: 20080405
  Serious: Yes (Life-Threatening, Hospitalization)
  Sender: FDA-Public Use
  Company Number: US-JNJFOC-200709 01758

PATIENT
  Age: 67 Year
  Sex: Female
  Weight: 88.9 kg

DRUGS (2)
  1. DECITABINE (DECITABINE) LYOPHILIZED [Suspect]
     Indication: MYELOFIBROSIS
     Dosage: 0.3 MG/KG, IN 1 DAY, SUBCUTANEOUS
     Route: 058
     Dates: start: 20070821, end: 20070901
  2. DECITABINE (DECITABINE) LYOPHILIZED [Suspect]
     Indication: MYELOFIBROSIS
     Dosage: 0.3 MG/KG, IN 1 DAY, SUBCUTANEOUS
     Route: 058
     Dates: start: 20070709

REACTIONS (15)
  - ACUTE FEBRILE NEUTROPHILIC DERMATOSIS [None]
  - ACUTE PULMONARY OEDEMA [None]
  - ANAEMIA [None]
  - AORTIC VALVE INCOMPETENCE [None]
  - CONDITION AGGRAVATED [None]
  - CONFUSIONAL STATE [None]
  - DISORIENTATION [None]
  - FALL [None]
  - HAEMATOMA [None]
  - HYPOXIA [None]
  - LETHARGY [None]
  - MENTAL STATUS CHANGES [None]
  - PYREXIA [None]
  - THROMBOCYTOPENIA [None]
  - VOMITING [None]
